FAERS Safety Report 8523365 (Version 3)
Quarter: 2013Q3

REPORT INFORMATION
  Report Type: Report from Study
  Country: CZ (occurrence: CZ)
  Receive Date: 20120420
  Receipt Date: 20130715
  Transmission Date: 20140515
  Serious: Yes (Hospitalization)
  Sender: FDA-Public Use
  Company Number: CZ-BRISTOL-MYERS SQUIBB COMPANY-16517641

PATIENT
  Age: 71 Year
  Sex: Female

DRUGS (6)
  1. SAXAGLIPTIN [Suspect]
     Indication: TYPE 2 DIABETES MELLITUS
     Dates: start: 20100701
  2. METFORMIN HCL [Suspect]
     Indication: TYPE 2 DIABETES MELLITUS
     Dosage: FROM 20JUN12 1000MG
     Dates: start: 20120104
  3. LEVEMIR [Suspect]
     Indication: TYPE 2 DIABETES MELLITUS
     Dates: end: 20120402
  4. APIDRA [Suspect]
     Indication: TYPE 2 DIABETES MELLITUS
  5. WARFARIN SODIUM [Suspect]
  6. MELOXICAM [Suspect]

REACTIONS (1)
  - Mallory-Weiss syndrome [Recovered/Resolved]
